FAERS Safety Report 25689478 (Version 1)
Quarter: 2025Q3

REPORT INFORMATION
  Report Type: Spontaneous
  Country: GB (occurrence: GB)
  Receive Date: 20250818
  Receipt Date: 20250818
  Transmission Date: 20251020
  Serious: Yes (Other)
  Sender: Kenvue
  Company Number: None

PATIENT

DRUGS (1)
  1. CETIRIZINE HYDROCHLORIDE [Suspect]
     Active Substance: CETIRIZINE HYDROCHLORIDE
     Indication: Mast cell activation syndrome
     Dosage: 10 MILLIGRAM, THRICE A DAY (30MG PER DAY)
     Route: 065
     Dates: start: 20250731, end: 20250803

REACTIONS (7)
  - Gastric pH increased [Not Recovered/Not Resolved]
  - Muscle spasms [Unknown]
  - Off label use [Unknown]
  - Prescribed overdose [Unknown]
  - Abdominal distension [Unknown]
  - Intestinal barrier dysfunction [Unknown]
  - Nausea [Unknown]

NARRATIVE: CASE EVENT DATE: 20250731
